FAERS Safety Report 18991910 (Version 1)
Quarter: 2021Q1

REPORT INFORMATION
  Report Type: Spontaneous
  Country: GB (occurrence: GB)
  Receive Date: 20210310
  Receipt Date: 20210310
  Transmission Date: 20210420
  Serious: Yes (Other)
  Sender: FDA-Public Use
  Company Number: GB-PFIZER INC-2021222629

PATIENT
  Age: 51 Year
  Sex: Male
  Weight: 130 kg

DRUGS (2)
  1. RAMIPRIL. [Concomitant]
     Active Substance: RAMIPRIL
     Dosage: UNK
  2. SERTRALINE HCL [Suspect]
     Active Substance: SERTRALINE HYDROCHLORIDE
     Indication: DEPRESSION
     Dosage: 100 MG, TWICE DAILY
     Route: 048
     Dates: start: 20201005

REACTIONS (6)
  - Male sexual dysfunction [Not Recovered/Not Resolved]
  - Dehydration [Unknown]
  - Erectile dysfunction [Unknown]
  - Loss of libido [Unknown]
  - Male orgasmic disorder [Unknown]
  - Dry mouth [Recovering/Resolving]

NARRATIVE: CASE EVENT DATE: 20201201
